FAERS Safety Report 9466509 (Version 2)
Quarter: 2013Q3

REPORT INFORMATION
  Report Type: Report from Study
  Country: US (occurrence: US)
  Receive Date: 20130820
  Receipt Date: 20130925
  Transmission Date: 20140515
  Serious: Yes (Hospitalization)
  Sender: FDA-Public Use
  Company Number: US-ACTELION-A-NJ2013-87181

PATIENT
  Age: 40 Year
  Sex: Female

DRUGS (1)
  1. TRACLEER [Suspect]
     Indication: PULMONARY HYPERTENSION
     Dosage: UNK
     Route: 048
     Dates: start: 20110620

REACTIONS (9)
  - Interstitial lung disease [Recovered/Resolved]
  - Condition aggravated [Recovered/Resolved]
  - Fluid overload [Recovered/Resolved]
  - Blood potassium decreased [Recovered/Resolved]
  - Pleuritic pain [Recovered/Resolved]
  - Palpitations [Recovered/Resolved]
  - Fluid retention [Recovered/Resolved]
  - Ascites [Recovered/Resolved]
  - Asthenia [Recovered/Resolved]
